FAERS Safety Report 18656571 (Version 1)
Quarter: 2020Q4

REPORT INFORMATION
  Report Type: Spontaneous
  Country: IT (occurrence: IT)
  Receive Date: 20201224
  Receipt Date: 20201224
  Transmission Date: 20210114
  Serious: Yes (Hospitalization)
  Sender: FDA-Public Use
  Company Number: IT-LUPIN PHARMACEUTICALS INC.-2020-10711

PATIENT
  Age: 11 Year
  Sex: Female

DRUGS (7)
  1. PHENYTOIN SODIUM. [Suspect]
     Active Substance: PHENYTOIN SODIUM
     Indication: STATUS EPILEPTICUS
     Dosage: UNK
     Route: 042
  2. CLOBAZAM. [Suspect]
     Active Substance: CLOBAZAM
     Indication: STATUS EPILEPTICUS
     Dosage: UNK
     Route: 065
  3. DIAZEPAM. [Suspect]
     Active Substance: DIAZEPAM
     Indication: STATUS EPILEPTICUS
     Dosage: UNK
     Route: 054
  4. VALPROIC ACID. [Suspect]
     Active Substance: VALPROIC ACID
     Indication: STATUS EPILEPTICUS
     Dosage: UNK
     Route: 065
  5. MIDAZOLAM. [Suspect]
     Active Substance: MIDAZOLAM
     Indication: STATUS EPILEPTICUS
     Dosage: UNK
     Route: 042
  6. STIRIPENTOL [Suspect]
     Active Substance: STIRIPENTOL
     Indication: STATUS EPILEPTICUS
     Dosage: UNK
     Route: 065
  7. LEVETIRACETAM. [Suspect]
     Active Substance: LEVETIRACETAM
     Indication: STATUS EPILEPTICUS
     Dosage: UNK
     Route: 042

REACTIONS (1)
  - Drug resistance [Unknown]
